FAERS Safety Report 22175629 (Version 1)
Quarter: 2023Q2

REPORT INFORMATION
  Report Type: Spontaneous
  Country: US (occurrence: None)
  Receive Date: 20230404
  Receipt Date: 20230404
  Transmission Date: 20230721
  Serious: Yes (Hospitalization)
  Sender: FDA-Public Use
  Company Number: None

PATIENT
  Age: 69 Year
  Sex: Female
  Weight: 49.31 kg

DRUGS (13)
  1. CYCLOPHOSPHAMIDE [Suspect]
     Active Substance: CYCLOPHOSPHAMIDE
     Indication: Amyloidosis
  2. ACYCLOVIR [Concomitant]
  3. ALBUTEROL [Concomitant]
  4. AMLODIPINE [Concomitant]
  5. ATORVASTATIN [Concomitant]
  6. BACTRIM DS [Concomitant]
  7. BORTEZOMIB [Concomitant]
  8. DARZALEX [Concomitant]
  9. DEXAMETHASONE [Concomitant]
  10. DULOXETINE [Concomitant]
  11. FERROUS SULFATE [Concomitant]
  12. HYDROXYZINE [Concomitant]
  13. LOSARTAN [Concomitant]

REACTIONS (1)
  - Hip arthroplasty [None]

NARRATIVE: CASE EVENT DATE: 20230403
